FAERS Safety Report 5269111-5 (Version None)
Quarter: 2007Q1

REPORT INFORMATION
  Report Type: 
  Country: None (occurrence: None)
  Receive Date: 20061213
  Receipt Date: 20030822
  Transmission Date: 20070707
  Serious: Yes (Other)
  Sender: FDA-Public Use
  Company Number: 2003UW09531

PATIENT
  Age: 83 Year
  Sex: Female

DRUGS (10)
  1. IRESSA [Suspect]
     Indication: NON-SMALL CELL LUNG CANCER
     Dates: start: 20030601
  2. VERAPAMIL [Concomitant]
  3. FUROSEMIDE [Concomitant]
  4. POTASSIUM ACETATE [Concomitant]
  5. SYNTHROID [Concomitant]
  6. ATIVAN [Concomitant]
  7. ULTRACET [Concomitant]
  8. CENTRUM [Concomitant]
  9. CALCIUM [Concomitant]
  10. ENSURE [Concomitant]

REACTIONS (5)
  - ACNE [None]
  - ALOPECIA [None]
  - ANOREXIA [None]
  - DIARRHOEA [None]
  - WEIGHT DECREASED [None]
